FAERS Safety Report 4305339-6 (Version None)
Quarter: 2004Q1

REPORT INFORMATION
  Report Type: 
  Country: None (occurrence: None)
  Receive Date: 20040226
  Receipt Date: 20030626
  Transmission Date: 20041129
  Serious: Yes (Hospitalization)
  Sender: FDA-Public Use
  Company Number: US-BRISTOL-MYERS SQUIBB COMPANY-12311973

PATIENT
  Age: 66 Year
  Sex: Female

DRUGS (5)
  1. TAXOL [Suspect]
     Indication: NON-SMALL CELL LUNG CANCER
     Route: 042
     Dates: start: 20030512, end: 20030512
  2. BENADRYL [Concomitant]
     Indication: PREMEDICATION
     Dosage: ADDITIONAL DOSING 25 MG (UNSPECIFIED DATE)
     Route: 042
     Dates: start: 20030512
  3. ZOFRAN [Concomitant]
     Indication: PREMEDICATION
     Route: 042
     Dates: start: 20030512
  4. TAGAMET [Concomitant]
     Indication: PREMEDICATION
     Route: 042
     Dates: start: 20030512
  5. DECADRON [Concomitant]
     Indication: PREMEDICATION
     Dosage: ADDITIONAL DOSING 8 MG (UNSPECIFIED DATE)
     Route: 042
     Dates: start: 20030512

REACTIONS (1)
  - ANAPHYLACTIC REACTION [None]
